FAERS Safety Report 16764875 (Version 2)
Quarter: 2021Q4

REPORT INFORMATION
  Report Type: Report from Study
  Country: CA (occurrence: CA)
  Receive Date: 20190903
  Receipt Date: 20211201
  Transmission Date: 20220303
  Serious: No
  Sender: FDA-Public Use
  Company Number: CA-BEH-2019105816

PATIENT
  Age: 63 Year
  Weight: 59 kg

DRUGS (4)
  1. BERINERT [Suspect]
     Active Substance: HUMAN C1-ESTERASE INHIBITOR
     Indication: Hereditary angioedema
     Dosage: 1500 INTERNATIONAL UNIT, BIW(EVERY 3-4 DAYS)
     Route: 058
     Dates: start: 20140610, end: 202010
  2. BERINERT [Suspect]
     Active Substance: HUMAN C1-ESTERASE INHIBITOR
     Indication: Hereditary angioedema
     Dosage: 1500 INTERNATIONAL UNIT, BIW(EVERY 3-4 DAYS)
     Route: 058
     Dates: start: 20140610, end: 202010
  3. BERINERT [Suspect]
     Active Substance: HUMAN C1-ESTERASE INHIBITOR
     Indication: Prophylaxis
  4. BERINERT [Suspect]
     Active Substance: HUMAN C1-ESTERASE INHIBITOR
     Indication: Prophylaxis

REACTIONS (3)
  - No adverse event [Unknown]
  - Off label use [Unknown]
  - Incorrect route of product administration [Unknown]

NARRATIVE: CASE EVENT DATE: 20190812
